FAERS Safety Report 7158029-9 (Version None)
Quarter: 2010Q4

REPORT INFORMATION
  Report Type: 
  Country: None (occurrence: None)
  Receive Date: 20101214
  Receipt Date: 20100413
  Transmission Date: 20110411
  Serious: No
  Sender: FDA-Public Use
  Company Number: US-ASTRAZENECA-2010SE16250

PATIENT
  Age: 57 Year
  Sex: Female
  Weight: 73 kg

DRUGS (4)
  1. CRESTOR [Suspect]
     Route: 048
  2. LECITHIN [Interacting]
  3. ZOLOFT [Concomitant]
  4. LOVAZA [Concomitant]

REACTIONS (2)
  - DRUG INTERACTION [None]
  - LIPIDS INCREASED [None]
